FAERS Safety Report 8078518-2 (Version None)
Quarter: 2012Q1

REPORT INFORMATION
  Report Type: 
  Country: None (occurrence: None)
  Receive Date: 20120127
  Receipt Date: 20110316
  Transmission Date: 20120608
  Serious: No
  Sender: FDA-Public Use
  Company Number: PR-ABBOTT-11P-131-0711388-00

PATIENT
  Sex: Female
  Weight: 70.37 kg

DRUGS (6)
  1. HUMIRA [Suspect]
     Indication: PRODUCT USED FOR UNKNOWN INDICATION
     Route: 058
  2. LOTREL [Concomitant]
     Indication: HYPERTENSION
     Dosage: 5/20MG- 1 CAPSULE DAILY
     Route: 048
  3. GABAPENTIN [Concomitant]
     Indication: MUSCLE SPASMS
     Dosage: 1 CAPSULE BEFORE SLEEP
     Route: 048
  4. PREDNISONE [Concomitant]
     Indication: RHEUMATOID ARTHRITIS
     Route: 048
  5. NAPROXEN [Concomitant]
     Indication: PAIN
     Dosage: AS INDICATED FOR PAIN
     Route: 048
  6. HUMIRA [Suspect]
     Route: 058

REACTIONS (5)
  - PRURITUS [None]
  - ARTHRALGIA [None]
  - RASH [None]
  - POOR PERIPHERAL CIRCULATION [None]
  - DRY SKIN [None]
